FAERS Safety Report 19078491 (Version 1)
Quarter: 2021Q1

REPORT INFORMATION
  Report Type: Spontaneous
  Country: US (occurrence: US)
  Receive Date: 20210331
  Receipt Date: 20210331
  Transmission Date: 20210420
  Serious: Yes (Hospitalization)
  Sender: FDA-Public Use
  Company Number: None

PATIENT
  Age: 76 Year
  Sex: Female
  Weight: 59 kg

DRUGS (1)
  1. BAMLANIVIMAB 700MG [Suspect]
     Active Substance: BAMLANIVIMAB
     Indication: COVID-19
     Route: 042
     Dates: start: 20210122

REACTIONS (5)
  - Hypoxia [None]
  - Laboratory test abnormal [None]
  - Pneumonia [None]
  - Malaise [None]
  - Confusional state [None]

NARRATIVE: CASE EVENT DATE: 20210122
